FAERS Safety Report 9233128 (Version 1)
Quarter: 2013Q2

REPORT INFORMATION
  Report Type: Spontaneous
  Country: IT (occurrence: IT)
  Receive Date: 20130416
  Receipt Date: 20130416
  Transmission Date: 20140414
  Serious: Yes (Death, Other)
  Sender: FDA-Public Use
  Company Number: PHHY2013IT036400

PATIENT
  Sex: 0

DRUGS (1)
  1. CICLOSPORIN [Suspect]
     Indication: IMMUNOSUPPRESSANT DRUG THERAPY

REACTIONS (3)
  - Intestinal perforation [Fatal]
  - Intestinal obstruction [Unknown]
  - Peritonitis sclerosing [Unknown]
